FAERS Safety Report 8104587-7 (Version None)
Quarter: 2012Q1

REPORT INFORMATION
  Report Type: 
  Country: None (occurrence: None)
  Receive Date: 20120201
  Receipt Date: 20120123
  Transmission Date: 20120608
  Serious: Yes (Other)
  Sender: FDA-Public Use
  Company Number: IT-ELI_LILLY_AND_COMPANY-IT201112002111

PATIENT

DRUGS (2)
  1. PRASUGREL HYDROCHLORIDE [Suspect]
     Dosage: 5 MG OR 10 MG, QD, MAINTENANCE DOSE
  2. PRASUGREL HYDROCHLORIDE [Suspect]
     Dosage: 60 MG, LOADING DOSE

REACTIONS (1)
  - ADVERSE EVENT [None]
